FAERS Safety Report 14486013 (Version 2)
Quarter: 2018Q2

REPORT INFORMATION
  Report Type: Report from Study
  Country: US (occurrence: US)
  Receive Date: 20180205
  Receipt Date: 20180416
  Transmission Date: 20180711
  Serious: Yes (Disabling, Other)
  Sender: FDA-Public Use
  Company Number: US-REGENERON PHARMACEUTICALS, INC.-2018-12522

PATIENT

DRUGS (3)
  1. EYLEA [Suspect]
     Active Substance: AFLIBERCEPT
     Dosage: 2 MG, EVERY 6 WEEKS
     Route: 031
     Dates: start: 20171205, end: 20171205
  2. EYLEA [Suspect]
     Active Substance: AFLIBERCEPT
     Indication: AGE-RELATED MACULAR DEGENERATION
     Dosage: 2 MG, EVERY 8 WEEKS
     Route: 031
     Dates: start: 20151117, end: 20171205
  3. EYLEA [Suspect]
     Active Substance: AFLIBERCEPT
     Dosage: 2 MG, LAST DOSE
     Route: 031
     Dates: start: 20171005, end: 20171005

REACTIONS (2)
  - Endophthalmitis [Recovered/Resolved]
  - Blindness transient [Recovering/Resolving]

NARRATIVE: CASE EVENT DATE: 20171015
